FAERS Safety Report 16024268 (Version 1)
Quarter: 2019Q1

REPORT INFORMATION
  Report Type: Spontaneous
  Country: FR (occurrence: FR)
  Receive Date: 20190301
  Receipt Date: 20190301
  Transmission Date: 20190418
  Serious: Yes (Other)
  Sender: FDA-Public Use
  Company Number: FR-SA-2019SA056152

PATIENT
  Age: 42 Year
  Sex: Male

DRUGS (3)
  1. ELOCTA [Suspect]
     Active Substance: EFMOROCTOCOG ALFA
     Dosage: 4000 IU
     Route: 042
     Dates: start: 20190221
  2. ELOCTA [Suspect]
     Active Substance: EFMOROCTOCOG ALFA
     Dosage: UNK
     Route: 042
     Dates: start: 201902
  3. FEIBA [Suspect]
     Active Substance: ANTI-INHIBITOR COAGULANT COMPLEX
     Route: 065

REACTIONS (2)
  - Chemical peritonitis [Unknown]
  - Factor VIII inhibition [Unknown]

NARRATIVE: CASE EVENT DATE: 201902
